FAERS Safety Report 11544563 (Version 9)
Quarter: 2016Q4

REPORT INFORMATION
  Report Type: Report from Study
  Country: CA (occurrence: CA)
  Receive Date: 20150924
  Receipt Date: 20161104
  Transmission Date: 20170206
  Serious: Yes (Other)
  Sender: FDA-Public Use
  Company Number: PHHY2015CA016789

PATIENT
  Age: 53 Year
  Sex: Female

DRUGS (5)
  1. ILARIS [Suspect]
     Active Substance: CANAKINUMAB
     Dosage: UNK
     Route: 065
  2. ILARIS [Suspect]
     Active Substance: CANAKINUMAB
     Indication: STILL^S DISEASE ADULT ONSET
     Dosage: 150 MG, EVERY 8 WEEKS
     Route: 058
     Dates: start: 20121204
  3. ILARIS [Suspect]
     Active Substance: CANAKINUMAB
     Dosage: UNK
     Route: 058
     Dates: start: 20160905
  4. ILARIS [Suspect]
     Active Substance: CANAKINUMAB
     Dosage: UNK
     Route: 058
     Dates: start: 20160421
  5. ILARIS [Suspect]
     Active Substance: CANAKINUMAB
     Dosage: UNK
     Route: 058
     Dates: start: 20160302

REACTIONS (27)
  - Skin warm [Recovering/Resolving]
  - Tremor [Recovered/Resolved]
  - Rash erythematous [Unknown]
  - Rash pruritic [Unknown]
  - Stress [Unknown]
  - Inflammation [Not Recovered/Not Resolved]
  - Back pain [Unknown]
  - Chills [Unknown]
  - Thrombosis [Unknown]
  - Pain of skin [Unknown]
  - Peripheral swelling [Recovered/Resolved]
  - Dry skin [Unknown]
  - Pyrexia [Unknown]
  - Product preparation error [Unknown]
  - Pain [Not Recovered/Not Resolved]
  - Product use issue [Unknown]
  - Malaise [Unknown]
  - Peripheral swelling [Unknown]
  - Infection [Unknown]
  - Skin exfoliation [Unknown]
  - Dysarthria [Not Recovered/Not Resolved]
  - Mobility decreased [Unknown]
  - Macule [Unknown]
  - Gait disturbance [Not Recovered/Not Resolved]
  - Arthralgia [Unknown]
  - Nasopharyngitis [Unknown]
  - Blood pressure diastolic increased [Unknown]

NARRATIVE: CASE EVENT DATE: 20121204
